FAERS Safety Report 9394017 (Version 2)
Quarter: 2013Q3

REPORT INFORMATION
  Report Type: Spontaneous
  Country: US (occurrence: US)
  Receive Date: 20130710
  Receipt Date: 20130828
  Transmission Date: 20140515
  Serious: No
  Sender: FDA-Public Use
  Company Number: US-009507513-1307USA004423

PATIENT
  Age: 57 Year
  Sex: Female

DRUGS (4)
  1. PEGINTRON [Suspect]
     Indication: HEPATITIS C
     Dosage: REDIPEN
     Route: 048
     Dates: start: 20130308
  2. REBETOL [Suspect]
     Indication: HEPATITIS C
     Dosage: UNK
     Route: 048
     Dates: start: 20130309
  3. TELAPREVIR [Suspect]
     Indication: HEPATITIS C
     Dosage: UNK
     Route: 048
     Dates: start: 20130329, end: 20130628
  4. PROCRIT [Concomitant]
     Indication: RED BLOOD CELL COUNT DECREASED

REACTIONS (9)
  - Memory impairment [Unknown]
  - Haemoglobin decreased [Unknown]
  - Pruritus [Unknown]
  - Dry skin [Unknown]
  - Abdominal distension [Unknown]
  - Abdominal distension [Unknown]
  - Constipation [Unknown]
  - Fatigue [Unknown]
  - Inappropriate schedule of drug administration [Unknown]
